FAERS Safety Report 4342536-8 (Version None)
Quarter: 2004Q1

REPORT INFORMATION
  Report Type: 
  Country: None (occurrence: None)
  Receive Date: 20040213
  Receipt Date: 20031229
  Transmission Date: 20041129
  Serious: Yes (Death)
  Sender: FDA-Public Use
  Company Number: 354982

PATIENT
  Sex: Male

DRUGS (2)
  1. PEGASYS (PEG-INTERFERON ALFA-2A) [Suspect]
     Dosage: SUBCUTANEOUS
     Route: 058
  2. COPEGUS [Suspect]
     Dosage: ORAL
     Route: 048

REACTIONS (1)
  - DEATH [None]
